FAERS Safety Report 9916493 (Version 3)
Quarter: 2014Q2

REPORT INFORMATION
  Report Type: Spontaneous
  Country: GB (occurrence: None)
  Receive Date: 20140219
  Receipt Date: 20140514
  Transmission Date: 20141212
  Serious: Yes (Life-Threatening, Hospitalization)
  Sender: FDA-Public Use
  Company Number: FK201400537

PATIENT
  Age: 67 Year
  Sex: Male
  Weight: 75.29 kg

DRUGS (12)
  1. CARBOPLATIN [Suspect]
     Indication: LUNG ADENOCARCINOMA
     Route: 042
     Dates: start: 20130110
  2. PEMETREXED [Suspect]
     Indication: PRODUCT USED FOR UNKNOWN INDICATION
     Dates: start: 20140110
  3. PARACETAMOL (PARACETAMOL) (PARACETAMOL) [Suspect]
     Indication: PAIN
     Route: 048
     Dates: start: 20140110
  4. ALENDRONATE (ALENDRONATE SODIUM) [Concomitant]
  5. CORSODYL [Concomitant]
  6. CYCLIZINE [Concomitant]
  7. DEXAMETHASONE (DEXAMETHASONE) [Concomitant]
  8. LANSOPRAZOLE (LANZOPRAZOLE) [Concomitant]
  9. NYSTATIN [Concomitant]
  10. OXYCONTIN (OXYCODONE HYDROCHLORIDE) [Concomitant]
  11. OXYNORM (OXYCODONE HYDROCHLORIDE) (OXYCODONE HYDROCHLORIDE) [Concomitant]
  12. SIMVASTATIN (SIMVASTATIN) [Concomitant]

REACTIONS (15)
  - Acidosis [None]
  - Renal failure acute [None]
  - Liver injury [None]
  - Jaundice [None]
  - Diarrhoea [None]
  - Neutropenia [None]
  - Urine output decreased [None]
  - Vomiting [None]
  - Overdose [None]
  - Sepsis [None]
  - Alanine aminotransferase increased [None]
  - Blood alkaline phosphatase increased [None]
  - Blood potassium increased [None]
  - Blood sodium decreased [None]
  - Dialysis [None]
